FAERS Safety Report 24970584 (Version 2)
Quarter: 2025Q1

REPORT INFORMATION
  Report Type: Spontaneous
  Country: DE (occurrence: DE)
  Receive Date: 20250214
  Receipt Date: 20250306
  Transmission Date: 20250409
  Serious: Yes (Other)
  Sender: AUROBINDO
  Company Number: DE-SANDOZ-SDZ2025DE005456

PATIENT
  Age: 53 Year

DRUGS (5)
  1. AMOXICILLIN [Suspect]
     Active Substance: AMOXICILLIN
     Indication: Helicobacter infection
     Route: 048
  2. CLARITHROMYCIN [Concomitant]
     Active Substance: CLARITHROMYCIN
     Indication: Helicobacter infection
     Route: 065
  3. PANTOPRAZOLE [Concomitant]
     Active Substance: PANTOPRAZOLE
     Indication: Helicobacter infection
     Route: 065
  4. PENICILLIN V [Concomitant]
     Active Substance: PENICILLIN V
     Indication: Product used for unknown indication
     Route: 065
  5. AMPICILLIN [Concomitant]
     Active Substance: AMPICILLIN
     Indication: Product used for unknown indication
     Route: 065

REACTIONS (7)
  - Symmetrical drug-related intertriginous and flexural exanthema [Recovered/Resolved]
  - Angioedema [Recovered/Resolved]
  - Pruritus [Recovered/Resolved]
  - Oedema [Recovered/Resolved]
  - Erythema [Recovered/Resolved]
  - Pustule [Recovered/Resolved]
  - Chills [Recovered/Resolved]
